FAERS Safety Report 6612531-4 (Version None)
Quarter: 2010Q1

REPORT INFORMATION
  Report Type: 
  Country: None (occurrence: None)
  Receive Date: 20100303
  Receipt Date: 20100223
  Transmission Date: 20100710
  Serious: Yes (Other)
  Sender: FDA-Public Use
  Company Number: US-PFIZER INC-2009314845

PATIENT
  Sex: Male
  Weight: 68.492 kg

DRUGS (5)
  1. LIPITOR [Suspect]
     Indication: HYPERLIPIDAEMIA
     Dosage: UNK
     Dates: start: 20000101
  2. TOPROL-XL [Concomitant]
  3. ASPIRIN [Concomitant]
  4. WELLBUTRIN [Concomitant]
  5. LEVOTHYROXINE SODIUM [Concomitant]

REACTIONS (1)
  - PANCREATITIS [None]
